FAERS Safety Report 11580908 (Version 1)
Quarter: 2015Q4

REPORT INFORMATION
  Report Type: Spontaneous
  Country: FR (occurrence: FR)
  Receive Date: 20151001
  Receipt Date: 20151001
  Transmission Date: 20160304
  Serious: Yes (Hospitalization, Other)
  Sender: FDA-Public Use
  Company Number: FR-BRISTOL-MYERS SQUIBB COMPANY-BMS-2015-063985

PATIENT
  Age: 88 Year
  Sex: Female

DRUGS (4)
  1. SEROPLEX [Concomitant]
     Active Substance: ESCITALOPRAM OXALATE
     Indication: ANXIETY
     Route: 048
  2. ZOPICLONE [Concomitant]
     Active Substance: ZOPICLONE
     Indication: INSOMNIA
     Dosage: UNK
     Route: 048
     Dates: start: 20150805
  3. COUMADINE [Suspect]
     Active Substance: WARFARIN SODIUM
     Indication: ATRIAL FIBRILLATION
     Dosage: UNK
     Route: 048
     Dates: end: 20150804
  4. CARDENSIEL [Concomitant]
     Active Substance: BISOPROLOL FUMARATE
     Indication: PRODUCT USED FOR UNKNOWN INDICATION
     Dosage: UNK
     Route: 048
     Dates: start: 20150805

REACTIONS (11)
  - Transfusion [Unknown]
  - Overdose [Unknown]
  - Malaise [Unknown]
  - Haemoglobin decreased [Unknown]
  - Shock haemorrhagic [Unknown]
  - Hypotension [Unknown]
  - Gastrointestinal haemorrhage [Recovered/Resolved]
  - Femur fracture [Unknown]
  - International normalised ratio increased [Recovered/Resolved]
  - Fall [Unknown]
  - Gastric mucosal lesion [Unknown]

NARRATIVE: CASE EVENT DATE: 20150803
